FAERS Safety Report 9883793 (Version 3)
Quarter: 2014Q3

REPORT INFORMATION
  Report Type: Spontaneous
  Country: US (occurrence: US)
  Receive Date: 20140210
  Receipt Date: 20140904
  Transmission Date: 20150326
  Serious: Yes (Hospitalization, Other)
  Sender: FDA-Public Use
  Company Number: US-AMGEN-USASP2014008044

PATIENT
  Age: 79 Year
  Sex: Female

DRUGS (6)
  1. CALCIUM + VITAMIN D                /01483701/ [Concomitant]
     Active Substance: CALCIUM\VITAMIN D
     Dosage: 500/500 UNK, BID
     Route: 065
  2. PROLIA [Suspect]
     Active Substance: DENOSUMAB
     Indication: OSTEOPOROSIS POSTMENOPAUSAL
     Dosage: UNK
     Route: 065
     Dates: start: 20130120
  3. HYOSCYAMINE [Concomitant]
     Active Substance: HYOSCYAMINE
     Indication: BLADDER SPASM
     Dosage: UNK UNK, AS NECESSARY
     Route: 065
  4. SYNTHROID [Concomitant]
     Active Substance: LEVOTHYROXINE SODIUM
     Route: 065
  5. ASPIRIN. [Concomitant]
     Active Substance: ASPIRIN
     Dosage: 81 MG, UNK
     Route: 065
  6. B12                                /00056201/ [Concomitant]
     Route: 065

REACTIONS (18)
  - Ear pain [Not Recovered/Not Resolved]
  - Unevaluable event [Unknown]
  - Adverse drug reaction [Unknown]
  - Upper limb fracture [Recovering/Resolving]
  - Wrist fracture [Recovering/Resolving]
  - Nervousness [Unknown]
  - Erythema [Unknown]
  - Fall [Unknown]
  - Toothache [Unknown]
  - Sinusitis [Unknown]
  - Cystitis [Unknown]
  - Nasal septum deviation [Unknown]
  - Pain in extremity [Unknown]
  - Tooth disorder [Unknown]
  - Mood altered [Unknown]
  - Pruritus [Unknown]
  - Musculoskeletal pain [Unknown]
  - Macular degeneration [Unknown]

NARRATIVE: CASE EVENT DATE: 201301
